FAERS Safety Report 9255460 (Version 3)
Quarter: 2013Q2

REPORT INFORMATION
  Report Type: Spontaneous
  Country: US (occurrence: None)
  Receive Date: 20130418
  Receipt Date: 20130530
  Transmission Date: 20140414
  Serious: Yes (Hospitalization, Other)
  Sender: FDA-Public Use
  Company Number: ADR-2013-00658

PATIENT
  Sex: Female

DRUGS (1)
  1. LIORESAL [Suspect]
     Indication: CEREBRAL PALSY
     Dosage: 60; SEE B5

REACTIONS (10)
  - Unevaluable event [None]
  - Hypotonia [None]
  - Activities of daily living impaired [None]
  - Rash [None]
  - Sleep disorder [None]
  - Lethargy [None]
  - Mental disorder [None]
  - Device issue [None]
  - Muscle spasticity [None]
  - Drug hypersensitivity [None]
